FAERS Safety Report 9356198 (Version 1)
Quarter: 2013Q2

REPORT INFORMATION
  Report Type: Spontaneous
  Country: IN (occurrence: None)
  Receive Date: 20130614
  Receipt Date: 20130614
  Transmission Date: 20140414
  Serious: Yes (Life-Threatening, Hospitalization)
  Sender: FDA-Public Use
  Company Number: AUR-APL-2013-04841

PATIENT
  Age: 22 Year
  Sex: Female

DRUGS (2)
  1. SERTRALINE (SERTRALINE) (SERTRALINE) [Suspect]
     Indication: MAJOR DEPRESSION
     Dosage: (50 MG, 1 IN 1 D)
     Route: 048
  2. CLONAZEPAM (CLONAZEPAM) (CLONAZEPAM) [Concomitant]

REACTIONS (20)
  - Intentional overdose [None]
  - Palpitations [None]
  - Respiratory rate increased [None]
  - Tremor [None]
  - Restlessness [None]
  - Agitation [None]
  - Confusional state [None]
  - Vomiting [None]
  - Heart rate increased [None]
  - Blood pressure systolic increased [None]
  - Body temperature increased [None]
  - Hyperreflexia [None]
  - Anger [None]
  - Disorientation [None]
  - Disturbance in attention [None]
  - Disturbance in attention [None]
  - Incoherent [None]
  - Dysphonia [None]
  - Cognitive disorder [None]
  - Suicide attempt [None]
